FAERS Safety Report 8144742-3 (Version None)
Quarter: 2012Q1

REPORT INFORMATION
  Report Type: 
  Country: None (occurrence: None)
  Receive Date: 20120217
  Receipt Date: 20120209
  Transmission Date: 20120608
  Serious: Yes (Other)
  Sender: FDA-Public Use
  Company Number: US-US-EMD SERONO, INC.-7110057

PATIENT
  Sex: Female
  Weight: 94 kg

DRUGS (2)
  1. REBIF [Suspect]
     Indication: PRODUCT USED FOR UNKNOWN INDICATION
     Route: 058
     Dates: start: 20111106
  2. OXYBUTYN [Concomitant]
     Indication: NEUROGENIC BLADDER
     Dates: start: 20111031

REACTIONS (3)
  - CYSTITIS [None]
  - KIDNEY INFECTION [None]
  - MUSCLE SPASMS [None]
